FAERS Safety Report 15668769 (Version 1)
Quarter: 2018Q4

REPORT INFORMATION
  Report Type: Other
  Country: ES (occurrence: ES)
  Receive Date: 20181129
  Receipt Date: 20181129
  Transmission Date: 20190205
  Serious: Yes (Death, Hospitalization)
  Sender: FDA-Public Use
  Company Number: ES-ASTELLAS-2018US050619

PATIENT
  Age: 85 Year
  Sex: Female

DRUGS (1)
  1. BETMIGA [Suspect]
     Active Substance: MIRABEGRON
     Indication: HYPERTONIC BLADDER
     Dosage: 50 MG, ONCE DAILY (1-0-0)
     Route: 048
     Dates: start: 20150316, end: 20180413

REACTIONS (5)
  - Urinary tract infection [Recovered/Resolved]
  - Thrombocytopenia [Not Recovered/Not Resolved]
  - Subdural haematoma [Recovering/Resolving]
  - Pneumonia [Fatal]
  - Subarachnoid haemorrhage [Recovered/Resolved]

NARRATIVE: CASE EVENT DATE: 20180104
